FAERS Safety Report 6234686-6 (Version None)
Quarter: 2009Q2

REPORT INFORMATION
  Report Type: 
  Country: None (occurrence: None)
  Receive Date: 20090615
  Receipt Date: 20090317
  Transmission Date: 20091009
  Serious: No
  Sender: FDA-Public Use
  Company Number: DSA_33400_2009

PATIENT
  Sex: Female

DRUGS (8)
  1. XENAZINE [Suspect]
     Indication: HUNTINGTON'S CHOREA
     Dosage: (12.5 MG, FREQUENCY UNKNOWN) A FEW MONTHS
  2. METFORMIN [Concomitant]
  3. PLAVIX [Concomitant]
  4. LISINOPRIL [Concomitant]
  5. PHERNERGAN [Concomitant]
  6. REQUIP [Concomitant]
  7. AMBIEN [Concomitant]
  8. PRAVACHOL [Concomitant]

REACTIONS (1)
  - RASH [None]
